FAERS Safety Report 10098919 (Version 1)
Quarter: 2014Q2

REPORT INFORMATION
  Report Type: Spontaneous
  Country: IN (occurrence: IN)
  Receive Date: 20140423
  Receipt Date: 20140423
  Transmission Date: 20141212
  Serious: Yes (Hospitalization, Other)
  Sender: FDA-Public Use
  Company Number: IN-ROXANE LABORATORIES, INC.-2014-RO-00636RO

PATIENT
  Age: 58 Year
  Sex: Female

DRUGS (1)
  1. VALACYCLOVIR HYDROCHLORIDE [Suspect]
     Indication: HERPES DERMATITIS
     Dosage: 500 MG
     Route: 065

REACTIONS (2)
  - Neurotoxicity [Recovered/Resolved]
  - Renal impairment [Unknown]
